FAERS Safety Report 8757602 (Version 1)
Quarter: 2012Q4

REPORT INFORMATION
  Report Type: 
  Country: US (occurrence: US)
  Receive Date: 20120828
  Receipt Date: 20120828
  Transmission Date: 20130627
  Serious: No
  Sender: FDA-Public Use
  Company Number: US-MYLANLABS-2012S1006485

PATIENT
  Age: 71 Year
  Sex: Female
  Weight: 86.18 kg

DRUGS (8)
  1. TEMAZEPAM CAPSULES [Suspect]
     Indication: INSOMNIA
     Route: 048
     Dates: start: 20120322, end: 20120324
  2. AMLODIPINE [Concomitant]
  3. CIMETIDINE [Concomitant]
  4. LOSARTIN [Concomitant]
  5. OXYBUTYNIN CHLORIDE [Concomitant]
  6. ATENOLOL [Concomitant]
  7. LEVOTHYROXINE [Concomitant]
     Dosage: Takes 1 1/2 tablets on Sundays
  8. OMEPRAZOLE [Concomitant]

REACTIONS (2)
  - Feeling cold [Recovered/Resolved]
  - Abdominal pain [None]
